FAERS Safety Report 8688061 (Version 3)
Quarter: 2020Q3

REPORT INFORMATION
  Report Type: Report from Study
  Country: IT (occurrence: IT)
  Receive Date: 20120727
  Receipt Date: 20121003
  Transmission Date: 20201105
  Serious: Yes (Hospitalization)
  Sender: FDA-Public Use
  Company Number: IT-JNJFOC-20120409033

PATIENT
  Age: 47 Year
  Sex: Male
  Weight: 129 kg

DRUGS (8)
  1. FLUCONAZOLE. [Concomitant]
     Active Substance: FLUCONAZOLE
     Dates: start: 20120216
  2. PREDNISONE. [Concomitant]
     Active Substance: PREDNISONE
     Indication: INFECTION
     Dosage: 5?50 MG TO INCLUDE TAPERING SCHEDULE
     Route: 048
     Dates: start: 20111009
  3. GOLIMUMAB [Suspect]
     Active Substance: GOLIMUMAB
     Indication: SARCOIDOSIS
     Route: 058
     Dates: start: 20110630, end: 20111207
  4. PREDNISONE. [Concomitant]
     Active Substance: PREDNISONE
     Indication: COUGH
     Dosage: 5?50 MG TO INCLUDE TAPERING SCHEDULE
     Route: 048
     Dates: start: 20111009
  5. GOLIMUMAB [Suspect]
     Active Substance: GOLIMUMAB
     Route: 058
  6. SODIUM ALGINATE/POTASSIUM BICARBONATE [Concomitant]
     Dates: start: 20120201
  7. PANTOPRAZOLE [Concomitant]
     Active Substance: PANTOPRAZOLE
     Dates: end: 20120418
  8. PREDNISONE. [Concomitant]
     Active Substance: PREDNISONE
     Indication: SARCOIDOSIS
     Dosage: 5?50 MG TO INCLUDE TAPERING SCHEDULE
     Route: 048
     Dates: start: 20111009

REACTIONS (1)
  - Tuberculosis [Recovered/Resolved]

NARRATIVE: CASE EVENT DATE: 20120402
